FAERS Safety Report 10622822 (Version 1)
Quarter: 2014Q4

REPORT INFORMATION
  Report Type: Spontaneous
  Country: US (occurrence: US)
  Receive Date: 20141203
  Receipt Date: 20141203
  Transmission Date: 20150529
  Serious: Yes (Other)
  Sender: FDA-Public Use
  Company Number: US-ASTRAZENECA-2014SE91034

PATIENT
  Age: 73 Year
  Sex: Male

DRUGS (3)
  1. TESTOSTERONE. [Concomitant]
     Active Substance: TESTOSTERONE
  2. CRESTOR [Suspect]
     Active Substance: ROSUVASTATIN CALCIUM
     Indication: PAROXYSMAL NOCTURNAL HAEMOGLOBINURIA
     Route: 048
  3. SOLIRIS [Suspect]
     Active Substance: ECULIZUMAB
     Indication: PAROXYSMAL NOCTURNAL HAEMOGLOBINURIA
     Dosage: 10 MG/ML UNKNOWN
     Route: 042
     Dates: end: 20081106

REACTIONS (5)
  - Blood count abnormal [Unknown]
  - Blood testosterone decreased [Unknown]
  - Anaemia [Unknown]
  - Upper respiratory tract infection [Unknown]
  - Muscular weakness [Unknown]
